FAERS Safety Report 9544853 (Version 1)
Quarter: 2013Q3

REPORT INFORMATION
  Report Type: Spontaneous
  Country: US (occurrence: US)
  Receive Date: 20130923
  Receipt Date: 20130923
  Transmission Date: 20140515
  Serious: No
  Sender: FDA-Public Use
  Company Number: US-GLAXOSMITHKLINE-A1000111A

PATIENT
  Age: 74 Year
  Sex: Female

DRUGS (1)
  1. ABREVA [Suspect]
     Indication: ORAL HERPES
     Dates: start: 20121101

REACTIONS (7)
  - Oral herpes [Unknown]
  - Condition aggravated [Unknown]
  - Application site scab [Not Recovered/Not Resolved]
  - Application site pain [Not Recovered/Not Resolved]
  - Application site pruritus [Not Recovered/Not Resolved]
  - Application site erythema [Not Recovered/Not Resolved]
  - Drug administration error [Unknown]
